FAERS Safety Report 4489992-2 (Version None)
Quarter: 2004Q4

REPORT INFORMATION
  Report Type: 
  Country: None (occurrence: None)
  Receive Date: 20041028
  Receipt Date: 20041006
  Transmission Date: 20050328
  Serious: Yes (Death)
  Sender: FDA-Public Use
  Company Number: 20041000427

PATIENT
  Age: 50 Year
  Sex: Male

DRUGS (1)
  1. KETOROLAC [Suspect]
     Indication: HEADACHE
     Dates: start: 20030101, end: 20030101

REACTIONS (12)
  - BRADYCARDIA [None]
  - CARDIAC ARREST [None]
  - HAEMORRHAGE [None]
  - HYPOTENSION [None]
  - HYPOXIA [None]
  - INFLAMMATION [None]
  - INJECTION SITE CELLULITIS [None]
  - INJECTION SITE PAIN [None]
  - INJECTION SITE SWELLING [None]
  - NAUSEA [None]
  - NECROTISING FASCIITIS [None]
  - VOMITING [None]
